FAERS Safety Report 7412553-X (Version None)
Quarter: 2011Q2

REPORT INFORMATION
  Report Type: 
  Country: None (occurrence: None)
  Receive Date: 20110408
  Receipt Date: 20110408
  Transmission Date: 20111010
  Serious: No
  Sender: FDA-Public Use
  Company Number: None

PATIENT
  Age: 33 Year
  Sex: Male
  Weight: 97.5234 kg

DRUGS (2)
  1. CELEBREX [Suspect]
     Indication: PROCEDURAL PAIN
     Dosage: 1 DAY PO
     Route: 048
     Dates: start: 20110323, end: 20110404
  2. CELEBREX [Suspect]
     Indication: BACK PAIN
     Dosage: 1 DAY PO
     Route: 048
     Dates: start: 20110323, end: 20110404

REACTIONS (2)
  - CHEST PAIN [None]
  - DYSPNOEA [None]
